FAERS Safety Report 10922583 (Version 1)
Quarter: 2015Q1

REPORT INFORMATION
  Report Type: Report from Study
  Country: US (occurrence: US)
  Receive Date: 20150317
  Receipt Date: 20150317
  Transmission Date: 20150721
  Serious: Yes (Other)
  Sender: FDA-Public Use
  Company Number: US-BAYER-2015-001433

PATIENT
  Age: 56 Year
  Sex: Female

DRUGS (3)
  1. STIVARGA [Suspect]
     Active Substance: REGORAFENIB
     Indication: COLORECTAL CANCER
     Dosage: 120 MG DAILY
     Route: 048
     Dates: start: 20150114, end: 20150119
  2. STIVARGA [Suspect]
     Active Substance: REGORAFENIB
     Indication: COLORECTAL CANCER
     Dosage: 80 MG, DAILY
     Route: 048
     Dates: start: 201501, end: 20150225
  3. STIVARGA [Suspect]
     Active Substance: REGORAFENIB
     Indication: COLORECTAL CANCER
     Dosage: 160 MG, QD
     Route: 048
     Dates: start: 20141219, end: 20141223

REACTIONS (11)
  - Nausea [Recovering/Resolving]
  - Colorectal cancer [None]
  - Nausea [None]
  - Vomiting [None]
  - Energy increased [None]
  - Vomiting [Recovered/Resolved]
  - Diarrhoea [None]
  - Blood bilirubin increased [None]
  - Fatigue [None]
  - Blood bilirubin increased [Recovered/Resolved]
  - Blister [None]

NARRATIVE: CASE EVENT DATE: 2014
